FAERS Safety Report 9238538 (Version 3)
Quarter: 2013Q3

REPORT INFORMATION
  Report Type: Spontaneous
  Country: US (occurrence: US)
  Receive Date: 20130418
  Receipt Date: 20130708
  Transmission Date: 20140515
  Serious: Yes (Other)
  Sender: FDA-Public Use
  Company Number: US-ASTELLAS-2013US003986

PATIENT
  Age: 73 Year
  Sex: Female

DRUGS (2)
  1. MYRBETRIQ [Suspect]
     Indication: HYPERTONIC BLADDER
     Dosage: UNK MG, UNKNOWN/D
     Route: 048
     Dates: start: 20130318, end: 201304
  2. MYRBETRIQ [Suspect]
     Indication: POLLAKIURIA

REACTIONS (4)
  - Dysphagia [Recovered/Resolved]
  - Oedema mouth [Recovered/Resolved]
  - Lip swelling [Recovered/Resolved]
  - Dry mouth [Recovered/Resolved]
